FAERS Safety Report 15627087 (Version 1)
Quarter: 2018Q4

REPORT INFORMATION
  Report Type: Spontaneous
  Country: US (occurrence: US)
  Receive Date: 20181116
  Receipt Date: 20181116
  Transmission Date: 20190205
  Serious: Yes (Hospitalization)
  Sender: FDA-Public Use
  Company Number: None

PATIENT
  Age: 79 Year
  Sex: Male

DRUGS (1)
  1. NITROL [Suspect]
     Active Substance: NITROGLYCERIN

REACTIONS (1)
  - Asthenia [None]

NARRATIVE: CASE EVENT DATE: 20181116
